FAERS Safety Report 4477291-4 (Version None)
Quarter: 2004Q4

REPORT INFORMATION
  Report Type: 
  Country: None (occurrence: None)
  Receive Date: 20041013
  Receipt Date: 20040928
  Transmission Date: 20050328
  Serious: Yes (Hospitalization)
  Sender: FDA-Public Use
  Company Number: F01200402945

PATIENT
  Age: 81 Year
  Sex: Male

DRUGS (6)
  1. (OXALIPLATIN)-SOLUTION-130MG/M2 [Suspect]
     Indication: COLORECTAL CANCER METASTATIC
     Dosage: 130MG/M2 Q3W, INTRAVENOUS NOS
     Route: 042
     Dates: start: 20040602, end: 20040602
  2. (CAPECITABINE) - TABLET - 1000 MG/M2 [Suspect]
     Dosage: 1000 MG/M2 TWICE DAILY FROM D1 TO D14, ORAL
     Route: 048
     Dates: start: 20040602
  3. (BEVACIZUMAB OR PLACEBO) - SOLUTION - 1 UNIT [Suspect]
     Dosage: 1 UNIT Q3W, INTRAVENOUS NOS
     Route: 042
     Dates: start: 20040602, end: 20040602
  4. CAPTIORPIL [Concomitant]
  5. DISOTHIAZIDE (HYDROCHLOROTHIAZIDE) [Concomitant]
  6. LERCANIDIPINE [Concomitant]

REACTIONS (12)
  - BLOOD CULTURE POSITIVE [None]
  - COMPLICATION OF DEVICE REMOVAL [None]
  - COUGH [None]
  - CULTURE URINE POSITIVE [None]
  - DEPRESSION [None]
  - DIARRHOEA HAEMORRHAGIC [None]
  - ESCHERICHIA INFECTION [None]
  - INTERNATIONAL NORMALISED RATIO INCREASED [None]
  - PANCYTOPENIA [None]
  - PSEUDOMONAS INFECTION [None]
  - PYREXIA [None]
  - STAPHYLOCOCCAL INFECTION [None]
